FAERS Safety Report 19925687 (Version 2)
Quarter: 2021Q4

REPORT INFORMATION
  Report Type: Spontaneous
  Country: DE (occurrence: DE)
  Receive Date: 20211007
  Receipt Date: 20211019
  Transmission Date: 20220303
  Serious: Yes (Hospitalization, Other)
  Sender: FDA-Public Use
  Company Number: DE-CELLTRION INC.-2021DE013389

PATIENT

DRUGS (5)
  1. INFLIXIMAB [Suspect]
     Active Substance: INFLIXIMAB
     Indication: Coronary artery dilatation
     Dosage: UNK
  2. INFLIXIMAB [Suspect]
     Active Substance: INFLIXIMAB
     Indication: Kawasaki^s disease
     Dosage: UNKNOWN
     Route: 065
  3. IMMUNOGLOBULINS [Concomitant]
     Indication: Kawasaki^s disease
     Dosage: UNKNOWN
     Route: 042
  4. PREDNISOLONE [Concomitant]
     Active Substance: PREDNISOLONE
     Indication: Kawasaki^s disease
     Dosage: UNKNOWN
     Route: 065
  5. ASPIRIN [Concomitant]
     Active Substance: ASPIRIN
     Indication: Kawasaki^s disease
     Dosage: UNKNOWN, IN THERAPEUTIC DOSES
     Route: 065

REACTIONS (6)
  - Cerebral microhaemorrhage [Unknown]
  - Cardiac perfusion defect [Unknown]
  - Leukoencephalopathy [Unknown]
  - Coronary artery stenosis [Unknown]
  - Enlarged cerebral perivascular spaces [Unknown]
  - Off label use [Unknown]
